FAERS Safety Report 4587022-5 (Version None)
Quarter: 2005Q1

REPORT INFORMATION
  Report Type: 
  Country: None (occurrence: None)
  Receive Date: 20050218
  Receipt Date: 20050209
  Transmission Date: 20050727
  Serious: Yes (Death, Hospitalization, Other)
  Sender: FDA-Public Use
  Company Number: ES-BRISTOL-MYERS SQUIBB COMPANY-12857041

PATIENT
  Age: 46 Year
  Sex: Male

DRUGS (5)
  1. CISPLATIN [Suspect]
     Indication: GLIOBLASTOMA MULTIFORME
     Route: 042
     Dates: start: 20010103, end: 20010216
  2. TEMODAL [Suspect]
     Indication: GLIOBLASTOMA MULTIFORME
     Dosage: ADMINISTRED:  03-JAN-2001 TO 07-JAN-2001 AND THEN 16-FEB-2001 TO 21-FEB-2001
     Route: 048
     Dates: start: 20010103, end: 20010221
  3. ONDANSETRON [Concomitant]
     Dates: start: 20010103, end: 20010103
  4. GRANISETRON [Concomitant]
     Dates: start: 20010216, end: 20010219
  5. DEXAMETHASONE [Concomitant]

REACTIONS (9)
  - COMA [None]
  - CONVULSION [None]
  - HYPERKALAEMIA [None]
  - INCONTINENCE [None]
  - MALIGNANT NEOPLASM PROGRESSION [None]
  - PANCYTOPENIA [None]
  - PNEUMONIA [None]
  - RENAL FAILURE [None]
  - STAPHYLOCOCCAL SEPSIS [None]
